FAERS Safety Report 15958197 (Version 6)
Quarter: 2019Q2

REPORT INFORMATION
  Report Type: Report from Study
  Country: FR (occurrence: FR)
  Receive Date: 20190213
  Receipt Date: 20190531
  Transmission Date: 20190711
  Serious: Yes (Hospitalization, Other)
  Sender: FDA-Public Use
  Company Number: PHHY2019FR031909

PATIENT
  Age: 56 Year
  Sex: Male

DRUGS (5)
  1. THIAMINE. [Concomitant]
     Active Substance: THIAMINE
     Indication: PRODUCT USED FOR UNKNOWN INDICATION
     Dosage: 250 / 50 (UNKNOWN UNITS)
     Route: 065
  2. OXAZEPAM. [Concomitant]
     Active Substance: OXAZEPAM
     Indication: PRODUCT USED FOR UNKNOWN INDICATION
     Dosage: 10 MG, UNK
     Route: 065
  3. GILENYA [Suspect]
     Active Substance: FINGOLIMOD HYDROCHLORIDE
     Indication: RELAPSING MULTIPLE SCLEROSIS
  4. GILENYA [Suspect]
     Active Substance: FINGOLIMOD HYDROCHLORIDE
     Indication: MULTIPLE SCLEROSIS
     Dosage: 0.5 MG, QD
     Route: 048
     Dates: start: 20171110, end: 201803
  5. PANTOPRAZOLE [Concomitant]
     Active Substance: PANTOPRAZOLE
     Indication: PRODUCT USED FOR UNKNOWN INDICATION
     Dosage: 40 MG, UNK
     Route: 065
     Dates: start: 201803

REACTIONS (8)
  - Lymphopenia [Recovered/Resolved]
  - Vomiting [Unknown]
  - Chest discomfort [Unknown]
  - Peritoneal haemorrhage [Unknown]
  - Nausea [Unknown]
  - Myocardial infarction [Recovered/Resolved]
  - Coronary artery occlusion [Unknown]
  - Neurilemmoma benign [Not Recovered/Not Resolved]

NARRATIVE: CASE EVENT DATE: 20180102
